FAERS Safety Report 8620449-0 (Version None)
Quarter: 2012Q3

REPORT INFORMATION
  Report Type: 
  Country: None (occurrence: None)
  Receive Date: 20120824
  Receipt Date: 20120820
  Transmission Date: 20120928
  Serious: No
  Sender: FDA-Public Use
  Company Number: US-PFIZER INC-2012204917

PATIENT
  Age: 68 Year
  Sex: Female
  Weight: 58.957 kg

DRUGS (2)
  1. LIOTHYRONINE SODIUM [Suspect]
     Indication: THYROID DISORDER
     Dosage: 5 UG, 1X/DAY
     Dates: start: 20120817
  2. LEVOXYL [Suspect]
     Indication: THYROID DISORDER
     Dosage: 50 UG, 1X/DAY

REACTIONS (4)
  - DRUG DISPENSING ERROR [None]
  - NAUSEA [None]
  - DYSPEPSIA [None]
  - THYROID DISORDER [None]
